FAERS Safety Report 6194024-4 (Version None)
Quarter: 2009Q2

REPORT INFORMATION
  Report Type: 
  Country: None (occurrence: None)
  Receive Date: 20090518
  Receipt Date: 20090511
  Transmission Date: 20091009
  Serious: Yes (Death)
  Sender: FDA-Public Use
  Company Number: US-GILEAD-2009-0021873

PATIENT
  Sex: Female
  Weight: 53.572 kg

DRUGS (13)
  1. LETAIRIS [Suspect]
     Indication: PULMONARY ARTERIAL HYPERTENSION
     Route: 048
     Dates: start: 20090116
  2. AMLODIPINE BESYLATE [Concomitant]
  3. DIGOXIN [Concomitant]
  4. OXYGEN [Concomitant]
  5. ADVAIR 250-50 DISKUS [Concomitant]
  6. MIRAPEX [Concomitant]
  7. SOMA [Concomitant]
  8. PREDNISONE [Concomitant]
  9. BETHANECHOL [Concomitant]
  10. ALPRAZOLAM [Concomitant]
  11. HYDROCODONE BITARTRATE + ACETAMINOPHEN [Concomitant]
  12. DIPHENHYDRAMINE HCL [Concomitant]
  13. FIBER CHOICE [Concomitant]

REACTIONS (1)
  - DEATH [None]
